FAERS Safety Report 6899449-7 (Version None)
Quarter: 2010Q3

REPORT INFORMATION
  Report Type: 
  Country: None (occurrence: None)
  Receive Date: 20100803
  Receipt Date: 20091102
  Transmission Date: 20110219
  Serious: No
  Sender: FDA-Public Use
  Company Number: US-PFIZER INC-2009175902

PATIENT
  Sex: Female
  Weight: 59.9 kg

DRUGS (3)
  1. NEURONTIN [Suspect]
     Indication: ARTHRALGIA
     Dosage: 100 MG, 2X/DAY
     Dates: start: 20090206
  2. ARICEPT [Suspect]
     Dosage: UNK
  3. LOPRESSOR [Concomitant]
     Dosage: UNK

REACTIONS (6)
  - ARTHRALGIA [None]
  - DEMENTIA ALZHEIMER'S TYPE [None]
  - DEPRESSION [None]
  - DIZZINESS [None]
  - EMOTIONAL DISORDER [None]
  - NERVOUSNESS [None]
